FAERS Safety Report 5962638-X (Version None)
Quarter: 2008Q4

REPORT INFORMATION
  Report Type: 
  Country: None (occurrence: None)
  Receive Date: 20081121
  Receipt Date: 20081118
  Transmission Date: 20090506
  Serious: Yes (Death, Other)
  Sender: FDA-Public Use
  Company Number: PHHY2008DE28909

PATIENT
  Sex: Female

DRUGS (3)
  1. ZOMETA [Suspect]
     Indication: METASTASES TO BONE
     Dosage: 4 MG EVERY 4 WEEKS
     Route: 042
     Dates: start: 20040122, end: 20060224
  2. ZOMETA [Suspect]
     Indication: BREAST CANCER
  3. FASLODEX [Concomitant]
     Indication: BREAST CANCER METASTATIC
     Dosage: 250 MG MONTHLY
     Route: 030
     Dates: start: 20050815, end: 20060601

REACTIONS (3)
  - MALIGNANT NEOPLASM PROGRESSION [None]
  - METASTASES TO LUNG [None]
  - OSTEONECROSIS [None]
